FAERS Safety Report 14084327 (Version 1)
Quarter: 2017Q4

REPORT INFORMATION
  Report Type: Spontaneous
  Country: BG (occurrence: BG)
  Receive Date: 20171013
  Receipt Date: 20171013
  Transmission Date: 20180321
  Serious: Yes (Hospitalization)
  Sender: FDA-Public Use
  Company Number: BG-JNJFOC-20171010210

PATIENT
  Age: 75 Year
  Sex: Female

DRUGS (16)
  1. SEPTACIN [Concomitant]
     Dosage: 200 MG 2X1 TABLET FOR 5 DAYS
     Route: 065
  2. ACC [Concomitant]
     Active Substance: ACETYLCYSTEINE
     Dosage: 600 MG, 2 X 1 FOR 7 DAYS
     Route: 065
  3. PANTOPRAZOLE [Concomitant]
     Active Substance: PANTOPRAZOLE
     Dosage: 1 TABLET IN THE EVENING BEFORE MEAL
     Route: 065
  4. LACTUFLOR [Concomitant]
     Route: 065
  5. XARELTO [Suspect]
     Active Substance: RIVAROXABAN
     Indication: PULMONARY EMBOLISM
     Route: 048
     Dates: start: 20170123
  6. LANITOP [Concomitant]
     Active Substance: METILDIGOXIN
     Route: 065
  7. XARELTO [Suspect]
     Active Substance: RIVAROXABAN
     Indication: PULMONARY EMBOLISM
     Route: 048
  8. SPIRONOLACTONE. [Concomitant]
     Active Substance: SPIRONOLACTONE
     Route: 065
  9. MAGNESIUM OROTATE [Concomitant]
     Dosage: 2X 1TABLET
     Route: 065
  10. DIGOXIN. [Concomitant]
     Active Substance: DIGOXIN
     Dosage: 0.25 MG HALF TABLET IN THE MORNING
     Route: 065
  11. MAGNEROT N [Concomitant]
     Dosage: 3 X 1 TABLET FOR 7 DAYS
     Route: 065
  12. TRANSMETIL [Concomitant]
     Active Substance: ADEMETIONINE
     Route: 065
  13. ALOPURINOL [Concomitant]
     Active Substance: ALLOPURINOL
     Route: 065
  14. FURANTRIL [Concomitant]
     Dosage: 1 TABLET IN THE MORNING AND EVENING ON AN EMPTY STOMACH
     Route: 065
  15. BISOPROLOL [Concomitant]
     Active Substance: BISOPROLOL
     Dosage: 2X1 TABLET
     Route: 065
  16. CONCOR [Concomitant]
     Active Substance: BISOPROLOL FUMARATE
     Dosage: 2 X HALF TABLET DAILY
     Route: 065

REACTIONS (7)
  - Atrial fibrillation [Unknown]
  - Left ventricular dysfunction [Unknown]
  - Atrial fibrillation [Unknown]
  - Dilatation atrial [Unknown]
  - Cardiac failure congestive [Unknown]
  - Cardiac failure congestive [Unknown]
  - Coronary artery disease [Unknown]

NARRATIVE: CASE EVENT DATE: 2017
